FAERS Safety Report 6865862-7 (Version None)
Quarter: 2010Q3

REPORT INFORMATION
  Report Type: 
  Country: None (occurrence: None)
  Receive Date: 20100722
  Receipt Date: 20100712
  Transmission Date: 20110219
  Serious: Yes (Other)
  Sender: FDA-Public Use
  Company Number: US-BIOGENIDEC-2010BI024048

PATIENT
  Age: 38 Year
  Sex: Female

DRUGS (1)
  1. TYSABRI [Suspect]
     Indication: MULTIPLE SCLEROSIS
     Route: 042
     Dates: start: 20080110

REACTIONS (10)
  - BALANCE DISORDER [None]
  - COORDINATION ABNORMAL [None]
  - DEPRESSION [None]
  - DERMATITIS CONTACT [None]
  - FALL [None]
  - INSOMNIA [None]
  - MULTIPLE SCLEROSIS RELAPSE [None]
  - SKIN LACERATION [None]
  - THROMBOSIS [None]
  - TRIGEMINAL NEURALGIA [None]
